FAERS Safety Report 22287200 (Version 2)
Quarter: 2023Q2

REPORT INFORMATION
  Report Type: Report from Study
  Country: US (occurrence: US)
  Receive Date: 20230505
  Receipt Date: 20230512
  Transmission Date: 20230721
  Serious: No
  Sender: FDA-Public Use
  Company Number: US-002147023-NVSC2023US100130

PATIENT
  Sex: Male

DRUGS (1)
  1. COSENTYX [Suspect]
     Active Substance: SECUKINUMAB
     Indication: Psoriasis
     Dosage: 300 MG, (FIRST LOADING DOSE OF 300 MG AND MAINTENANCE DOSE OF 150 MG))
     Route: 058
     Dates: start: 20230304

REACTIONS (3)
  - Scar [Unknown]
  - Dry skin [Unknown]
  - Incorrect dose administered [Unknown]
